FAERS Safety Report 14665036 (Version 1)
Quarter: 2018Q1

REPORT INFORMATION
  Report Type: Spontaneous
  Country: US (occurrence: US)
  Receive Date: 20180319
  Receipt Date: 20180319
  Transmission Date: 20180509
  Serious: Yes (Disabling)
  Sender: FDA-Public Use
  Company Number: None

PATIENT
  Age: 59 Year
  Sex: Female
  Weight: 118.8 kg

DRUGS (26)
  1. ZOLOFT [Concomitant]
     Active Substance: SERTRALINE HYDROCHLORIDE
  2. XOPENEX [Concomitant]
     Active Substance: LEVALBUTEROL HYDROCHLORIDE
  3. POTASSUM CHLORIDE POWDER FOR ORAL SOLUTION [Concomitant]
     Active Substance: POTASSIUM CHLORIDE
  4. PROPRANOLOL [Concomitant]
     Active Substance: PROPRANOLOL HYDROCHLORIDE
  5. RELPAX [Concomitant]
     Active Substance: ELETRIPTAN HYDROBROMIDE
  6. SIMVASTATIN. [Concomitant]
     Active Substance: SIMVASTATIN
  7. SYMBICORT [Concomitant]
     Active Substance: BUDESONIDE\FORMOTEROL FUMARATE DIHYDRATE
  8. VITAMIN C [Concomitant]
     Active Substance: ASCORBIC ACID
  9. ALDACTONE [Concomitant]
     Active Substance: SPIRONOLACTONE
  10. TYLENOL WITH CODEINE [Concomitant]
     Active Substance: ACETAMINOPHEN\CODEINE PHOSPHATE
  11. ZOFRAN [Concomitant]
     Active Substance: ONDANSETRON HYDROCHLORIDE
  12. NEURONTIN [Concomitant]
     Active Substance: GABAPENTIN
  13. CALCIUM [Concomitant]
     Active Substance: CALCIUM
  14. SINGULAIR [Concomitant]
     Active Substance: MONTELUKAST SODIUM
  15. COLACE [Concomitant]
     Active Substance: DOCUSATE SODIUM
  16. ROBAXIN [Concomitant]
     Active Substance: METHOCARBAMOL
  17. BABY ASA [Concomitant]
     Active Substance: ASPIRIN
  18. VITAMIN E [Concomitant]
     Active Substance: .ALPHA.-TOCOPHEROL
  19. VITAMIN A AND D [Concomitant]
     Active Substance: LANOLIN\PETROLATUM
  20. BIOTIN [Concomitant]
     Active Substance: BIOTIN
  21. LEVAQUIN [Suspect]
     Active Substance: LEVOFLOXACIN
     Indication: SINUSITIS
     Dosage: ?          QUANTITY:150 OUNCE(S);?
     Route: 042
     Dates: start: 20180310, end: 20180319
  22. ZANTAC [Concomitant]
     Active Substance: RANITIDINE HYDROCHLORIDE
  23. PLAQUENIL [Concomitant]
     Active Substance: HYDROXYCHLOROQUINE SULFATE
  24. PROLIA [Concomitant]
     Active Substance: DENOSUMAB
  25. VITAMIN D [Concomitant]
     Active Substance: CHOLECALCIFEROL
  26. I-LYSINE [Concomitant]

REACTIONS (1)
  - Musculoskeletal pain [None]

NARRATIVE: CASE EVENT DATE: 20180314
